FAERS Safety Report 8987809 (Version 1)
Quarter: 2012Q4

REPORT INFORMATION
  Report Type: 
  Country: US (occurrence: US)
  Receive Date: 20121227
  Receipt Date: 20121227
  Transmission Date: 20130627
  Serious: No
  Sender: FDA-Public Use
  Company Number: US-PFIZER INC-2012325043

PATIENT
  Age: 78 Year
  Sex: Female
  Weight: 83.9 kg

DRUGS (1)
  1. CELEBREX [Suspect]
     Indication: PAIN
     Dosage: UNK, 2xday
     Route: 048
     Dates: start: 20121203

REACTIONS (8)
  - Haemorrhoids [Recovered/Resolved]
  - Skin burning sensation [Recovered/Resolved]
  - Vomiting projectile [Recovered/Resolved]
  - Diarrhoea [Recovered/Resolved]
  - Hyperhidrosis [Recovered/Resolved]
  - Asthenia [Recovered/Resolved]
  - Muscular weakness [Recovered/Resolved]
  - Weight increased [Recovered/Resolved]
